FAERS Safety Report 4777566-5 (Version None)
Quarter: 2005Q3

REPORT INFORMATION
  Report Type: 
  Country: None (occurrence: None)
  Receive Date: 20050921
  Receipt Date: 20050912
  Transmission Date: 20060218
  Serious: No
  Sender: FDA-Public Use
  Company Number: 05H-087-0302470-00

PATIENT

DRUGS (1)
  1. MORPHINE SULFATE INJECTION, USP, PRESERVATIVE FREE [Suspect]
     Indication: PALLIATIVE CARE

REACTIONS (2)
  - DELIRIUM [None]
  - DIARRHOEA [None]
